FAERS Safety Report 6774490-3 (Version None)
Quarter: 2010Q2

REPORT INFORMATION
  Report Type: 
  Country: None (occurrence: None)
  Receive Date: 20100617
  Receipt Date: 20100607
  Transmission Date: 20101027
  Serious: Yes (Hospitalization)
  Sender: FDA-Public Use
  Company Number: PHHY2010US33178

PATIENT
  Sex: Male
  Weight: 64.399 kg

DRUGS (2)
  1. RECLAST [Suspect]
     Indication: OSTEOPOROSIS
     Dosage: 5 MG
     Route: 042
     Dates: start: 20100415
  2. STEROIDS NOS [Concomitant]

REACTIONS (4)
  - EXCORIATION [None]
  - FALL [None]
  - MUSCULAR WEAKNESS [None]
  - PYREXIA [None]
